FAERS Safety Report 6686750-5 (Version None)
Quarter: 2010Q2

REPORT INFORMATION
  Report Type: 
  Country: None (occurrence: None)
  Receive Date: 20100419
  Receipt Date: 20100408
  Transmission Date: 20101027
  Serious: Yes (Other)
  Sender: FDA-Public Use
  Company Number: US-MERCK-0911USA04326

PATIENT
  Age: 68 Year
  Sex: Female

DRUGS (2)
  1. FOSAMAX [Suspect]
     Indication: PROPHYLAXIS
     Route: 048
     Dates: start: 19960401
  2. FOSAMAX [Suspect]
     Route: 048
     Dates: start: 20010601, end: 20090101

REACTIONS (37)
  - ABSCESS [None]
  - ANXIETY [None]
  - BASAL CELL CARCINOMA [None]
  - BLOOD CHOLESTEROL INCREASED [None]
  - BLOOD PRESSURE INCREASED [None]
  - BONE DENSITY DECREASED [None]
  - BONE FRAGMENTATION [None]
  - CATARACT [None]
  - COMMINUTED FRACTURE [None]
  - COMPRESSION FRACTURE [None]
  - CONSTIPATION [None]
  - DENTAL CARIES [None]
  - EXCORIATION [None]
  - FALL [None]
  - FISTULA [None]
  - GASTROOESOPHAGEAL REFLUX DISEASE [None]
  - HIATUS HERNIA [None]
  - HYPERTENSION [None]
  - JAW DISORDER [None]
  - NOCTURIA [None]
  - ORAL CAVITY FISTULA [None]
  - ORAL DISORDER [None]
  - ORAL HERPES [None]
  - ORAL PAIN [None]
  - OSTEOARTHRITIS [None]
  - OSTEONECROSIS [None]
  - PALPITATIONS [None]
  - PERIODONTAL DISEASE [None]
  - PERIODONTITIS [None]
  - RADIUS FRACTURE [None]
  - TOOTH ABSCESS [None]
  - TOOTH DEPOSIT [None]
  - TOOTH EXTRACTION [None]
  - TOOTH FRACTURE [None]
  - ULNA FRACTURE [None]
  - UPPER RESPIRATORY TRACT INFECTION [None]
  - VIRAL INFECTION [None]
